FAERS Safety Report 8775101 (Version 1)
Quarter: 2012Q4

REPORT INFORMATION
  Report Type: 
  Country: US (occurrence: US)
  Receive Date: 20120910
  Receipt Date: 20120910
  Transmission Date: 20130627
  Serious: Yes (Other)
  Sender: FDA-Public Use
  Company Number: US-JNJFOC-20120815218

PATIENT
  Age: 54 None
  Sex: Female
  Weight: 64.86 kg

DRUGS (6)
  1. FENTANYL TRANSDERMAL SYSTEM [Suspect]
     Indication: PAIN
     Dosage: NDC# 0781-7243-55
     Route: 062
     Dates: start: 201202, end: 20120828
  2. FENTANYL TRANSDERMAL SYSTEM [Suspect]
     Indication: PAIN
     Dosage: NDC# 0781-7243-55
     Route: 062
     Dates: start: 201201, end: 201202
  3. CENESTIN [Concomitant]
     Indication: HORMONE REPLACEMENT THERAPY
     Route: 048
     Dates: end: 20120828
  4. OXYCODONE [Concomitant]
     Indication: BREAKTHROUGH PAIN
     Dosage: 5 mg every 4 hours as needed
     Route: 048
     Dates: start: 20120619
  5. XANAX [Concomitant]
     Indication: ANXIETY
     Dosage: 4 times a day as necessary
     Route: 048
     Dates: start: 2010
  6. WELLBUTRIN [Concomitant]
     Indication: DEPRESSION
     Route: 048

REACTIONS (13)
  - Ankle fracture [Recovered/Resolved]
  - Depression [Recovered/Resolved]
  - Intervertebral disc degeneration [Recovered/Resolved]
  - Withdrawal syndrome [Not Recovered/Not Resolved]
  - Paraesthesia [Recovered/Resolved]
  - Hypoaesthesia [Recovered/Resolved]
  - Fall [Recovered/Resolved]
  - Balance disorder [Recovered/Resolved]
  - Economic problem [None]
  - Drug administration error [None]
  - Malaise [None]
  - Fatigue [None]
  - Crying [None]
